FAERS Safety Report 16919785 (Version 2)
Quarter: 2019Q4

REPORT INFORMATION
  Report Type: Spontaneous
  Country: US (occurrence: US)
  Receive Date: 20191015
  Receipt Date: 20191223
  Transmission Date: 20200122
  Serious: Yes (Hospitalization)
  Sender: FDA-Public Use
  Company Number: US-GENERICUS, INC.-2019GNR00031

PATIENT
  Sex: Male
  Weight: 19.5 kg

DRUGS (2)
  1. TOBRAMYCIN. [Suspect]
     Active Substance: TOBRAMYCIN
     Indication: CYSTIC FIBROSIS
     Dosage: 300 MG, 2X/DAY, 28 DAYS ON AND 28 DAYS OFF
     Dates: start: 20171003
  2. TOBRAMYCIN. [Suspect]
     Active Substance: TOBRAMYCIN
     Dosage: 300 MG, 2X/DAY, 28 DAYS ON AND 28 DAYS OFF
     Dates: start: 20190506

REACTIONS (2)
  - Infective pulmonary exacerbation of cystic fibrosis [Not Recovered/Not Resolved]
  - Viral infection [Unknown]
